FAERS Safety Report 17668393 (Version 1)
Quarter: 2020Q2

REPORT INFORMATION
  Report Type: Spontaneous
  Country: US (occurrence: US)
  Receive Date: 20200414
  Receipt Date: 20200414
  Transmission Date: 20200713
  Serious: Yes (Other)
  Sender: FDA-Public Use
  Company Number: US-AUROBINDO-AUR-APL-2020-018304

PATIENT
  Age: 22 Year
  Sex: Male

DRUGS (7)
  1. AMIODARONE HYDROCHLORIDE. [Suspect]
     Active Substance: AMIODARONE HYDROCHLORIDE
     Indication: VENTRICULAR FIBRILLATION
     Dosage: UNK
     Route: 065
  2. QUINIDINE [Suspect]
     Active Substance: QUINIDINE
     Indication: VENTRICULAR FIBRILLATION
     Dosage: UNK
     Route: 065
  3. THIAMAZOLE [Concomitant]
     Active Substance: METHIMAZOLE
     Indication: HYPERTHYROIDISM
     Dosage: UNK
     Route: 065
  4. PROPAFENONE HYDROCHLORIDE. [Suspect]
     Active Substance: PROPAFENONE HYDROCHLORIDE
     Indication: VENTRICULAR FIBRILLATION
     Dosage: UNK
     Route: 065
  5. SOTALOL. [Suspect]
     Active Substance: SOTALOL
     Indication: VENTRICULAR FIBRILLATION
     Dosage: UNK
     Route: 065
  6. FLECAINIDE [Suspect]
     Active Substance: FLECAINIDE
     Indication: VENTRICULAR FIBRILLATION
     Dosage: UNK
     Route: 065
  7. MEXILETINE [Suspect]
     Active Substance: MEXILETINE
     Indication: VENTRICULAR FIBRILLATION
     Dosage: UNK
     Route: 065

REACTIONS (2)
  - Treatment failure [Unknown]
  - Product use in unapproved indication [Unknown]
